FAERS Safety Report 6980383-9 (Version None)
Quarter: 2010Q3

REPORT INFORMATION
  Report Type: 
  Country: None (occurrence: None)
  Receive Date: 20100914
  Receipt Date: 20091210
  Transmission Date: 20110219
  Serious: No
  Sender: FDA-Public Use
  Company Number: US-ABBOTT-09P-163-0614110-00

PATIENT
  Sex: Male
  Weight: 30.872 kg

DRUGS (7)
  1. DEPAKOTE [Suspect]
     Indication: CEREBRAL PALSY
     Route: 050
     Dates: start: 20090901, end: 20091210
  2. DEPAKOTE [Suspect]
     Indication: CONVULSION
  3. PREVACID [Concomitant]
     Indication: GASTROOESOPHAGEAL REFLUX DISEASE
     Route: 050
  4. CLONAZEPAM [Concomitant]
     Indication: CONVULSION
     Dosage: 0.5 TABLET
     Route: 050
  5. ZANAFLEX [Concomitant]
     Indication: MUSCLE DISORDER
     Dosage: 1 TAB AM 1/2 TAB PM
     Route: 050
  6. BACLOFEN [Concomitant]
     Indication: MUSCLE DISORDER
     Dosage: 1/2 TAB AM 1 TAB PM
     Route: 050
  7. PERIACTIN [Concomitant]
     Indication: WEIGHT DECREASED
     Dosage: 2MG/5ML
     Route: 050

REACTIONS (2)
  - CONVULSION [None]
  - DRUG INEFFECTIVE [None]
